FAERS Safety Report 10909172 (Version 1)
Quarter: 2015Q1

REPORT INFORMATION
  Report Type: Spontaneous
  Country: US (occurrence: US)
  Receive Date: 20150312
  Receipt Date: 20150312
  Transmission Date: 20150721
  Serious: No
  Sender: FDA-Public Use
  Company Number: US-SA-2014SA035701

PATIENT
  Sex: Male

DRUGS (1)
  1. NASACORT ALLERGY 24HR [Suspect]
     Active Substance: TRIAMCINOLONE ACETONIDE
     Dosage: 2 SPRAY PER NOSTRIL?FROM 14TH STARTED ONE SPRAY PER NOSTRIL?18TH OF MARCH 2 SPRAYS PER NOSTRIL.
     Route: 065
     Dates: start: 20140306

REACTIONS (3)
  - Underdose [Unknown]
  - Rhinorrhoea [Unknown]
  - Sneezing [Unknown]
